FAERS Safety Report 6606608-7 (Version None)
Quarter: 2010Q1

REPORT INFORMATION
  Report Type: 
  Country: None (occurrence: None)
  Receive Date: 20100226
  Receipt Date: 20100215
  Transmission Date: 20100710
  Serious: Yes (Other)
  Sender: FDA-Public Use
  Company Number: CA-PFIZER INC-2010020174

PATIENT
  Age: 45 Year
  Sex: Female

DRUGS (1)
  1. SUTENT [Suspect]
     Indication: CERVIX CARCINOMA
     Dosage: 50 MG, IN 6 CYCLE, ONCE DAILY TREATMENT FOR 4 WEEKS, FOLLWED BY 2 WEEKS OFF
     Route: 048

REACTIONS (1)
  - FISTULA [None]
